FAERS Safety Report 11649278 (Version 2)
Quarter: 2015Q4

REPORT INFORMATION
  Report Type: Spontaneous
  Country: US (occurrence: US)
  Receive Date: 20151021
  Receipt Date: 20151102
  Transmission Date: 20160304
  Serious: No
  Sender: FDA-Public Use
  Company Number: US-BAYER-2015-448787

PATIENT
  Age: 67 Year
  Sex: Female
  Weight: 117.91 kg

DRUGS (1)
  1. MIRALAX [Suspect]
     Active Substance: POLYETHYLENE GLYCOL 3350
     Indication: CONSTIPATION
     Dosage: 1 DF, UNK
     Route: 048
     Dates: end: 20151018

REACTIONS (2)
  - Flatulence [None]
  - Discomfort [None]

NARRATIVE: CASE EVENT DATE: 20151018
